FAERS Safety Report 15574726 (Version 1)
Quarter: 2018Q4

REPORT INFORMATION
  Report Type: Spontaneous
  Country: JP (occurrence: JP)
  Receive Date: 20181101
  Receipt Date: 20181101
  Transmission Date: 20190205
  Serious: Yes (Life-Threatening, Other)
  Sender: FDA-Public Use
  Company Number: JP-BRACCO-2018JP05562

PATIENT
  Sex: Male

DRUGS (4)
  1. IOPAMIRON [Suspect]
     Active Substance: IOPAMIDOL
     Indication: DIAGNOSTIC PROCEDURE
     Dosage: 3 ML, SINGLE
     Dates: start: 2008
  2. IOPAMIRON [Suspect]
     Active Substance: IOPAMIDOL
     Indication: DIAGNOSTIC PROCEDURE
     Dosage: 100 ML, SINGLE
  3. IOPAMIRON [Suspect]
     Active Substance: IOPAMIDOL
     Indication: SCAN
     Dosage: 200 ML, UNK
  4. IOPAMIRON [Suspect]
     Active Substance: IOPAMIDOL
     Indication: DIAGNOSTIC PROCEDURE
     Dosage: 40 ML (10 ML/SEC)
     Route: 013
     Dates: start: 2008, end: 2008

REACTIONS (9)
  - Incorrect route of product administration [Unknown]
  - Optic nerve compression [Unknown]
  - Thrombosis [Unknown]
  - Cardio-respiratory arrest [Recovered/Resolved]
  - Apallic syndrome [Recovered/Resolved]
  - Blindness [Unknown]
  - Peripheral swelling [Not Recovered/Not Resolved]
  - Extra dose administered [Unknown]
  - Loss of consciousness [Recovered/Resolved]

NARRATIVE: CASE EVENT DATE: 2008
